FAERS Safety Report 5920078-3 (Version None)
Quarter: 2008Q4

REPORT INFORMATION
  Report Type: 
  Country: None (occurrence: None)
  Receive Date: 20081014
  Receipt Date: 20080929
  Transmission Date: 20090506
  Serious: Yes (Hospitalization)
  Sender: FDA-Public Use
  Company Number: 004653

PATIENT
  Age: 16 Year
  Sex: Male

DRUGS (6)
  1. BUSULFEX [Suspect]
     Indication: STEM CELL TRANSPLANT
     Dosage: UNK, INTRAVENOUS
     Route: 042
     Dates: start: 20080410, end: 20080414
  2. ALKERAN [Concomitant]
  3. VALPROATE SODIUM [Concomitant]
  4. NEUTROGIN (LENOGRASTIM) [Concomitant]
  5. METHOTREXATE [Concomitant]
  6. TACROLIMUS [Concomitant]

REACTIONS (10)
  - ANOREXIA [None]
  - BONE MARROW TRANSPLANT [None]
  - DIARRHOEA [None]
  - HYPERGLYCAEMIA [None]
  - LIVER DISORDER [None]
  - NAUSEA [None]
  - SEPSIS [None]
  - SIALOADENITIS [None]
  - STOMATITIS [None]
  - VOMITING [None]
